FAERS Safety Report 18272040 (Version 1)
Quarter: 2020Q3

REPORT INFORMATION
  Report Type: Spontaneous
  Country: FR (occurrence: FR)
  Receive Date: 20200916
  Receipt Date: 20200916
  Transmission Date: 20201103
  Serious: Yes (Hospitalization)
  Sender: FDA-Public Use
  Company Number: FR-CADILA HEALTHCARE LIMITED-FR-ZYDUS-023116

PATIENT

DRUGS (6)
  1. DESLORATADINE. [Suspect]
     Active Substance: DESLORATADINE
     Indication: POISONING DELIBERATE
     Dosage: 75 MILLIGRAM,(INTERVAL :1 TOTAL)
     Dates: start: 20180606, end: 20180606
  2. LANSOPRAZOLE. [Suspect]
     Active Substance: LANSOPRAZOLE
     Indication: POISONING DELIBERATE
     Dosage: 105 MILLIGRAM,105 MG ; IN TOTAL,(INTERVAL :1 TOTAL)
     Route: 048
     Dates: start: 20180606, end: 20180606
  3. PYOSTACINE [Suspect]
     Active Substance: PRISTINAMYCIN
     Indication: POISONING DELIBERATE
     Dosage: 4000 MILLIGRAM,IN TOTAL,(INTERVAL :1 TOTAL)
     Route: 048
     Dates: start: 20180606, end: 20180606
  4. SERETIDE [Suspect]
     Active Substance: FLUTICASONE PROPIONATE\SALMETEROL XINAFOATE
     Indication: POISONING DELIBERATE
     Dosage: NOT SPECIFIED
     Route: 055
     Dates: start: 20180606, end: 20180606
  5. RISPERIDONE. [Suspect]
     Active Substance: RISPERIDONE
     Indication: POISONING DELIBERATE
     Dosage: 40 MILLIGRAM,IN TOTAL,(INTERVAL :1 TOTAL)
     Route: 048
     Dates: start: 20180606, end: 20180606
  6. OGASTORO [Suspect]
     Active Substance: LANSOPRAZOLE
     Indication: POISONING DELIBERATE
     Dosage: 105 MILLIGRAM,IN TOTAL,(INTERVAL :1 TOTAL)
     Route: 048
     Dates: start: 20180606, end: 20180606

REACTIONS (3)
  - Somnolence [Recovered/Resolved]
  - Blood creatine phosphokinase increased [Recovered/Resolved]
  - Myoglobin blood increased [Recovered/Resolved]

NARRATIVE: CASE EVENT DATE: 20180606
